FAERS Safety Report 20594987 (Version 1)
Quarter: 2022Q1

REPORT INFORMATION
  Report Type: Spontaneous
  Country: GB (occurrence: GB)
  Receive Date: 20220315
  Receipt Date: 20220315
  Transmission Date: 20220424
  Serious: Yes (Hospitalization)
  Sender: FDA-Public Use
  Company Number: None

PATIENT
  Sex: Male

DRUGS (5)
  1. OMEPRAZOLE [Suspect]
     Active Substance: OMEPRAZOLE
  2. ALVERINE [Concomitant]
     Active Substance: ALVERINE
  3. FINASTERIDE [Concomitant]
     Active Substance: FINASTERIDE
  4. MIRABEGRON [Concomitant]
     Active Substance: MIRABEGRON
  5. TAMSULOSIN [Concomitant]
     Active Substance: TAMSULOSIN

REACTIONS (1)
  - Clostridium difficile colitis [Recovering/Resolving]
